FAERS Safety Report 25740151 (Version 1)
Quarter: 2025Q3

REPORT INFORMATION
  Report Type: Spontaneous
  Country: US (occurrence: None)
  Receive Date: 20250828
  Receipt Date: 20250828
  Transmission Date: 20251020
  Serious: Yes (Other)
  Sender: FDA-CTU
  Company Number: None

PATIENT
  Age: 67 Year
  Sex: Male
  Weight: 75.15 kg

DRUGS (6)
  1. RECLAST [Suspect]
     Active Substance: ZOLEDRONIC ACID
     Indication: Bone loss
     Dosage: OTHER QUANTITY : 5 5 MG BAG;?OTHER FREQUENCY : ONCE PER YEAR;?
     Route: 042
     Dates: start: 20250825, end: 20250825
  2. Liala [Concomitant]
  3. Calsium [Concomitant]
  4. MAGNESIUM [Concomitant]
     Active Substance: MAGNESIUM
  5. IRON [Concomitant]
     Active Substance: IRON
  6. VITAMIN D [Concomitant]
     Active Substance: VITAMIN D NOS

REACTIONS (7)
  - Chills [None]
  - Influenza like illness [None]
  - Headache [None]
  - Dizziness [None]
  - Loss of consciousness [None]
  - Face injury [None]
  - Nasal injury [None]

NARRATIVE: CASE EVENT DATE: 20250825
